FAERS Safety Report 4559669-3 (Version None)
Quarter: 2005Q1

REPORT INFORMATION
  Report Type: 
  Country: None (occurrence: None)
  Receive Date: 20050114
  Receipt Date: 20041007
  Transmission Date: 20050727
  Serious: Yes (Other)
  Sender: FDA-Public Use
  Company Number: FEI2004-1222

PATIENT
  Sex: Female

DRUGS (1)
  1. INTRAUTERINE COPPER CONTRACEPTIVE [Suspect]
     Indication: CONTRACEPTION
     Dosage: INTRA-UTERINE
     Route: 015

REACTIONS (3)
  - IUCD COMPLICATION [None]
  - IUD MIGRATION [None]
  - UNINTENDED PREGNANCY [None]
